FAERS Safety Report 17216220 (Version 6)
Quarter: 2020Q4

REPORT INFORMATION
  Report Type: Report from Study
  Country: FR (occurrence: FR)
  Receive Date: 20191230
  Receipt Date: 20201209
  Transmission Date: 20210113
  Serious: Yes (Death, Hospitalization)
  Sender: FDA-Public Use
  Company Number: FR-BAYER-2019-236021

PATIENT
  Sex: Male
  Weight: 58 kg

DRUGS (21)
  1. ACUPAN [Concomitant]
     Active Substance: NEFOPAM HYDROCHLORIDE
     Dosage: UNK
     Dates: start: 20191119
  2. CLOZAPINE. [Concomitant]
     Active Substance: CLOZAPINE
     Dosage: UNK
     Dates: start: 20191129
  3. ANTICOAGULATION [Concomitant]
     Active Substance: UNSPECIFIED INGREDIENT
     Indication: THROMBOPHLEBITIS SUPERFICIAL
     Dosage: UNK
     Dates: start: 20191216, end: 20191219
  4. GEMCITABINE. [Concomitant]
     Active Substance: GEMCITABINE
     Indication: HEPATOCELLULAR CARCINOMA
     Dosage: CYCLE
     Dates: start: 20191207
  5. STIVARGA [Suspect]
     Active Substance: REGORAFENIB
     Indication: HEPATOCELLULAR CARCINOMA
     Dosage: DAILY DOSE 80 MG
     Dates: start: 20191107
  6. STIVARGA [Suspect]
     Active Substance: REGORAFENIB
     Indication: HEPATOCELLULAR CARCINOMA
     Dosage: DAILY DOSE 80 MG
     Dates: start: 20191120, end: 20191129
  7. BEVACIZUMAB. [Concomitant]
     Active Substance: BEVACIZUMAB
     Indication: HEPATOCELLULAR CARCINOMA
     Dosage: CYCLE
     Dates: start: 20191207
  8. HALDOL [Concomitant]
     Active Substance: HALOPERIDOL
     Indication: GASTROINTESTINAL TOXICITY
     Dosage: UNK
     Dates: start: 20191119
  9. TRAMADOL. [Concomitant]
     Active Substance: TRAMADOL
     Dosage: UNK
     Dates: start: 201911
  10. MORPHINE [Concomitant]
     Active Substance: MORPHINE
     Indication: ABDOMINAL PAIN
     Dosage: 1 MG EVERY HOUR
     Dates: start: 201912
  11. HALDOL [Concomitant]
     Active Substance: HALOPERIDOL
     Indication: VOMITING
  12. OXALIPLATINE [Concomitant]
     Active Substance: OXALIPLATIN
     Indication: HEPATOCELLULAR CARCINOMA
     Dosage: CYCLE
     Dates: start: 20191207
  13. ANTICOAGULATION [Concomitant]
     Active Substance: UNSPECIFIED INGREDIENT
     Indication: THROMBOPHLEBITIS SUPERFICIAL
     Dosage: UNK
     Dates: start: 201912, end: 20191213
  14. ALPRAZOLAM. [Concomitant]
     Active Substance: ALPRAZOLAM
     Dosage: 1 TABLET AS NEEDED
     Dates: start: 20190601
  15. UVEDOSE [Concomitant]
     Active Substance: CHOLECALCIFEROL
     Dosage: UNK
     Dates: start: 20191120
  16. STIVARGA [Suspect]
     Active Substance: REGORAFENIB
     Indication: HEPATOCELLULAR CARCINOMA
     Dosage: DAILY DOSE 120 MG
     Dates: start: 20191113
  17. PANTOPRAZOLE [Concomitant]
     Active Substance: PANTOPRAZOLE
     Dosage: DAILY DOSE 40 MG
     Dates: start: 20191219
  18. PRIMPERAN [Concomitant]
     Active Substance: METOCLOPRAMIDE HYDROCHLORIDE
     Indication: GASTROINTESTINAL TOXICITY
     Dosage: UNK
     Dates: start: 201911
  19. ULTRA LEVURE [Concomitant]
     Active Substance: SACCHAROMYCES CEREVISIAE
     Dosage: 200 MG
     Dates: start: 20191120
  20. ZOPHREN [ONDANSETRON] [Concomitant]
     Active Substance: ONDANSETRON
     Indication: VOMITING
     Dosage: 8 MG, BID
     Dates: start: 20191129
  21. HYPNOVEL [MIDAZOLAM] [Concomitant]
     Active Substance: MIDAZOLAM
     Dosage: 0.3 MG
     Dates: start: 201912

REACTIONS (3)
  - Lower respiratory tract congestion [Fatal]
  - Gastrointestinal toxicity [Recovered/Resolved]
  - Hepatocellular carcinoma [Fatal]

NARRATIVE: CASE EVENT DATE: 20191129
